FAERS Safety Report 7526330-2 (Version None)
Quarter: 2011Q2

REPORT INFORMATION
  Report Type: 
  Country: None (occurrence: None)
  Receive Date: 20110606
  Receipt Date: 20110525
  Transmission Date: 20111010
  Serious: Yes (Hospitalization)
  Sender: FDA-Public Use
  Company Number: PL-ELI_LILLY_AND_COMPANY-PL201105004103

PATIENT
  Sex: Male
  Weight: 82.3 kg

DRUGS (1)
  1. DULOXETIME HYDROCHLORIDE [Suspect]
     Indication: DIABETIC NEUROPATHY
     Dosage: UNK
     Route: 048
     Dates: start: 20110316, end: 20110429

REACTIONS (1)
  - HYPERTENSION [None]
